FAERS Safety Report 10010506 (Version 1)
Quarter: 2014Q1

REPORT INFORMATION
  Report Type: Spontaneous
  Country: MX (occurrence: MX)
  Receive Date: 20140314
  Receipt Date: 20140314
  Transmission Date: 20141002
  Serious: Yes (Other)
  Sender: FDA-Public Use
  Company Number: MX-BEH-2014041058

PATIENT
  Age: 6 Year
  Sex: Male

DRUGS (2)
  1. INTRAVENOUS IMMUNOGLOBULIN [Suspect]
     Indication: KAWASAKI^S DISEASE
  2. ASPIRIN [Concomitant]
     Indication: KAWASAKI^S DISEASE

REACTIONS (1)
  - VIth nerve paralysis [Recovering/Resolving]
